FAERS Safety Report 21390551 (Version 1)
Quarter: 2022Q3

REPORT INFORMATION
  Report Type: Spontaneous
  Country: US (occurrence: None)
  Receive Date: 20220927
  Receipt Date: 20220927
  Transmission Date: 20221026
  Serious: Yes (Disabling)
  Sender: FDA-Public Use
  Company Number: None

PATIENT
  Age: 28 Year
  Sex: Female
  Weight: 72 kg

DRUGS (7)
  1. ZOLOFT [Suspect]
     Active Substance: SERTRALINE HYDROCHLORIDE
     Dates: start: 20220912, end: 20220924
  2. VOLTAREN [Concomitant]
     Active Substance: DICLOFENAC SODIUM
  3. LYRICA [Concomitant]
     Active Substance: PREGABALIN
  4. ZANAFLEX [Concomitant]
     Active Substance: TIZANIDINE HYDROCHLORIDE
  5. LAMICTAL [Concomitant]
     Active Substance: LAMOTRIGINE
  6. UNSPECIFIED INGREDIENT [Concomitant]
     Active Substance: UNSPECIFIED INGREDIENT
  7. VITAMINS [Concomitant]
     Active Substance: VITAMINS

REACTIONS (9)
  - Lip swelling [None]
  - Lip blister [None]
  - Scab [None]
  - Skin exfoliation [None]
  - Burning sensation [None]
  - Pruritus [None]
  - Confusional state [None]
  - Feeling hot [None]
  - Hyperhidrosis [None]

NARRATIVE: CASE EVENT DATE: 20220920
